FAERS Safety Report 5870418-9 (Version None)
Quarter: 2008Q3

REPORT INFORMATION
  Report Type: 
  Country: None (occurrence: None)
  Receive Date: 20080904
  Receipt Date: 20080403
  Transmission Date: 20090109
  Serious: No
  Sender: FDA-Public Use
  Company Number: US-BRISTOL-MYERS SQUIBB COMPANY-14137657

PATIENT
  Sex: Female

DRUGS (1)
  1. DEFINITY [Suspect]

REACTIONS (4)
  - DIZZINESS [None]
  - DYSPNOEA [None]
  - SENSATION OF BLOOD FLOW [None]
  - SENSATION OF HEAVINESS [None]
